FAERS Safety Report 6096713-9 (Version None)
Quarter: 2009Q1

REPORT INFORMATION
  Report Type: 
  Country: None (occurrence: None)
  Receive Date: 20090225
  Receipt Date: 20090209
  Transmission Date: 20090719
  Serious: Yes (Other)
  Sender: FDA-Public Use
  Company Number: 2009S1002225

PATIENT
  Age: 56 Year
  Sex: Female

DRUGS (5)
  1. ALENDRONIC ACID [Suspect]
     Indication: PROPHYLAXIS
     Dosage: 70 MG; WEEKLY ORAL
     Route: 048
     Dates: start: 20081005, end: 20090107
  2. ADCAL-D3 (LEKOVIT CA) [Concomitant]
  3. ANASTROZOLE [Concomitant]
  4. IBUPROFEN [Concomitant]
  5. LEVOTHYROXINE SODIUM [Concomitant]

REACTIONS (1)
  - MUSCLE SPASMS [None]
